FAERS Safety Report 14564080 (Version 1)
Quarter: 2018Q1

REPORT INFORMATION
  Report Type: Spontaneous
  Country: MX (occurrence: MX)
  Receive Date: 20180222
  Receipt Date: 20180222
  Transmission Date: 20180509
  Serious: Yes (Other)
  Sender: FDA-Public Use
  Company Number: MX-PFIZER INC-2018076492

PATIENT
  Age: 57 Year
  Sex: Female

DRUGS (1)
  1. XELJANZ [Suspect]
     Active Substance: TOFACITINIB CITRATE
     Dosage: 5 MG, DAILY

REACTIONS (2)
  - Aphasia [Recovered/Resolved]
  - Cerebrovascular accident [Not Recovered/Not Resolved]
